FAERS Safety Report 6944925-1 (Version None)
Quarter: 2010Q3

REPORT INFORMATION
  Report Type: 
  Country: None (occurrence: None)
  Receive Date: 20100827
  Receipt Date: 20100820
  Transmission Date: 20110219
  Serious: Yes (Other)
  Sender: FDA-Public Use
  Company Number: CHPA2010US13509

PATIENT
  Age: 88 Year
  Sex: Female
  Weight: 40.816 kg

DRUGS (1)
  1. VOLTAREN [Suspect]
     Indication: BACK PAIN
     Dosage: UNK, ON AND OFF
     Route: 061
     Dates: start: 20080101

REACTIONS (5)
  - DRUG ADMINISTERED AT INAPPROPRIATE SITE [None]
  - GLAUCOMA [None]
  - HYPERTENSION [None]
  - OFF LABEL USE [None]
  - WRONG TECHNIQUE IN DRUG USAGE PROCESS [None]
